FAERS Safety Report 4977599-X (Version None)
Quarter: 2006Q2

REPORT INFORMATION
  Report Type: 
  Country: None (occurrence: None)
  Receive Date: 20060420
  Receipt Date: 20060303
  Transmission Date: 20061013
  Serious: Yes (Death, Hospitalization)
  Sender: FDA-Public Use
  Company Number: GBWYE448603MAR06

PATIENT
  Sex: Female

DRUGS (7)
  1. ENBREL [Suspect]
     Indication: RHEUMATOID ARTHRITIS
     Route: 058
     Dates: start: 20060117
  2. ETODOLAC [Concomitant]
     Route: 065
  3. MOVICOL [Concomitant]
     Route: 065
  4. CODEINE PHOSPHATE/PARACETAMOL [Concomitant]
     Route: 065
  5. RISEDRONATE [Concomitant]
     Route: 065
  6. CALCICHEW [Concomitant]
     Route: 065
  7. PREDNISOLONE [Concomitant]
     Route: 065

REACTIONS (3)
  - BRONCHOPNEUMONIA [None]
  - CARDIAC ARREST [None]
  - SEPTIC SHOCK [None]
